FAERS Safety Report 14879053 (Version 1)
Quarter: 2018Q2

REPORT INFORMATION
  Report Type: Spontaneous
  Country: US (occurrence: US)
  Receive Date: 20180511
  Receipt Date: 20180511
  Transmission Date: 20180711
  Serious: No
  Sender: FDA-Public Use
  Company Number: US-SA-2017SA149215

PATIENT
  Age: 33 Year
  Sex: Female

DRUGS (2)
  1. SOLOSTAR [Suspect]
     Active Substance: DEVICE
     Indication: DIABETES MELLITUS
     Dates: start: 20151119
  2. APIDRA SOLOSTAR [Suspect]
     Active Substance: INSULIN GLULISINE
     Indication: DIABETES MELLITUS
     Dosage: DOSE: 6-10 U?DAILY DOSE: 18-30 U
     Route: 058
     Dates: start: 20151119

REACTIONS (4)
  - Vomiting [Unknown]
  - Malaise [Unknown]
  - Hyperglycaemia [Unknown]
  - Product use issue [Unknown]
